FAERS Safety Report 4372856-2 (Version None)
Quarter: 2004Q2

REPORT INFORMATION
  Report Type: 
  Country: None (occurrence: None)
  Receive Date: 20040603
  Receipt Date: 20040526
  Transmission Date: 20050107
  Serious: Yes (Death, Hospitalization)
  Sender: FDA-Public Use
  Company Number: F01200401227

PATIENT
  Age: 73 Year
  Sex: Male

DRUGS (4)
  1. (OXALIPLATIN) - SOLUTION - 130 MG/M2 [Suspect]
     Dosage: INTRAVENOUS NOS
     Route: 042
     Dates: start: 20040414, end: 20040414
  2. (CAPECITABINE) - TABLET - UNIT DOSE : UNKNOWN [Suspect]
     Dosage: 1000 MG TWICE A DAY PER ORAL FROM D1 TO D15
     Route: 048
     Dates: start: 20040414
  3. LIPITOR [Concomitant]
  4. CELEBREX [Concomitant]

REACTIONS (2)
  - DEHYDRATION [None]
  - HYPOTENSION [None]
